FAERS Safety Report 13025820 (Version 2)
Quarter: 2017Q1

REPORT INFORMATION
  Report Type: Spontaneous
  Country: US (occurrence: US)
  Receive Date: 20161214
  Receipt Date: 20170126
  Transmission Date: 20170428
  Serious: No
  Sender: FDA-Public Use
  Company Number: US-BAYER-2016-233574

PATIENT
  Age: 88 Year
  Sex: Male
  Weight: 79.37 kg

DRUGS (3)
  1. ALEVE [Suspect]
     Active Substance: NAPROXEN SODIUM
     Indication: PAIN
     Dosage: 2 DF, HS
     Route: 048
     Dates: start: 2014, end: 2017
  2. ALEVE PM [Suspect]
     Active Substance: DIPHENHYDRAMINE HYDROCHLORIDE\NAPROXEN SODIUM
     Indication: ARTHRALGIA
     Dosage: 2 DF, HS
     Route: 048
     Dates: start: 20161204, end: 20161206
  3. LOSARTAN POTASSIUM. [Concomitant]
     Active Substance: LOSARTAN POTASSIUM
     Dosage: UNK

REACTIONS (5)
  - Poor quality sleep [None]
  - Product use issue [Unknown]
  - Product use issue [None]
  - Product physical issue [None]
  - Drug ineffective [None]

NARRATIVE: CASE EVENT DATE: 20161204
